FAERS Safety Report 4276665-4 (Version None)
Quarter: 2004Q1

REPORT INFORMATION
  Report Type: 
  Country: None (occurrence: None)
  Receive Date: 20040120
  Receipt Date: 20040105
  Transmission Date: 20041129
  Serious: Yes (Other)
  Sender: FDA-Public Use
  Company Number: 234869

PATIENT
  Age: 8 Year
  Sex: Male

DRUGS (1)
  1. NORDITROPIN [Suspect]
     Indication: GROWTH RETARDATION

REACTIONS (8)
  - ANAPLASTIC ASTROCYTOMA [None]
  - FACIAL PALSY [None]
  - FEBRILE CONVULSION [None]
  - HEADACHE [None]
  - LOSS OF CONSCIOUSNESS [None]
  - NEOPLASM RECURRENCE [None]
  - SOMNOLENCE [None]
  - TONSILLITIS [None]
